FAERS Safety Report 16825871 (Version 1)
Quarter: 2019Q3

REPORT INFORMATION
  Report Type: Spontaneous
  Country: CA (occurrence: CA)
  Receive Date: 20190919
  Receipt Date: 20190919
  Transmission Date: 20191005
  Serious: Yes (Other)
  Sender: FDA-Public Use
  Company Number: CA-TEVA-2019-CA-1110708

PATIENT
  Age: 79 Year
  Sex: Female
  Weight: 70.82 kg

DRUGS (7)
  1. COUMADIN [Concomitant]
     Active Substance: WARFARIN SODIUM
  2. VALSARTAN. [Suspect]
     Active Substance: VALSARTAN
     Indication: HYPERTENSION
     Dosage: 320 MILLIGRAM DAILY;
     Route: 048
  3. APO-METFORMIN - TAB 500MG [Concomitant]
     Active Substance: METFORMIN HYDROCHLORIDE
  4. APO FUROSEMIDE TAB 20MG [Concomitant]
     Active Substance: FUROSEMIDE
  5. SYNTHROID - TAB 75MCG [Concomitant]
  6. PRADAXA [Concomitant]
     Active Substance: DABIGATRAN ETEXILATE MESYLATE
  7. APO-ATORVASTATIN [Concomitant]
     Active Substance: ATORVASTATIN

REACTIONS (1)
  - Breast cancer [Recovering/Resolving]
